FAERS Safety Report 7252065-X (Version None)
Quarter: 2011Q1

REPORT INFORMATION
  Report Type: 
  Country: None (occurrence: None)
  Receive Date: 20110128
  Receipt Date: 20100430
  Transmission Date: 20110831
  Serious: No
  Sender: FDA-Public Use
  Company Number: US-ABBOTT-10P-163-0641703-00

PATIENT
  Sex: Female
  Weight: 55.842 kg

DRUGS (5)
  1. HUMIRA [Suspect]
     Dates: start: 20100301
  2. METHOTREXATE [Concomitant]
     Indication: RHEUMATOID ARTHRITIS
  3. ULTRAM [Concomitant]
     Indication: PAIN
  4. HUMIRA [Suspect]
     Indication: RHEUMATOID ARTHRITIS
     Dates: start: 20080101, end: 20090101
  5. LYRICA [Concomitant]
     Indication: PAIN

REACTIONS (10)
  - CHILLS [None]
  - HEADACHE [None]
  - PYREXIA [None]
  - PAIN [None]
  - RESPIRATORY TRACT CONGESTION [None]
  - INFLUENZA [None]
  - VOMITING [None]
  - UPPER RESPIRATORY TRACT INFECTION [None]
  - COUGH [None]
  - FUNGAL INFECTION [None]
